FAERS Safety Report 8783371 (Version 1)
Quarter: 2012Q4

REPORT INFORMATION
  Report Type: 
  Country: US (occurrence: US)
  Receive Date: 20120913
  Receipt Date: 20120913
  Transmission Date: 20130627
  Serious: No
  Sender: FDA-Public Use
  Company Number: US-VERTEX PHARMACEUTICAL INC.-AE-2012-008411

PATIENT
  Age: 48 Year
  Sex: Female

DRUGS (26)
  1. INCIVEK [Suspect]
     Indication: HEPATITIS C
     Route: 048
  2. INCIVEK [Suspect]
     Route: 048
  3. PEGASYS PROCLICK MONTHLY [Concomitant]
     Indication: HEPATITIS C
     Route: 058
  4. RIBAPAK [Concomitant]
     Indication: HEPATITIS C
  5. RIBAPAK [Concomitant]
  6. LISINOPRIL [Concomitant]
  7. LISINOPRIL [Concomitant]
  8. CITALOPRAM [Concomitant]
  9. CITALOPRAM [Concomitant]
  10. WELLBUTRIN [Concomitant]
  11. WELLBUTRIN [Concomitant]
  12. IBUPROFEN DRO INFANTS [Concomitant]
  13. MELATONIN [Concomitant]
  14. MELATONIN [Concomitant]
  15. BENADRYL ALL LIQ SINUS [Concomitant]
  16. CALCIUM 500 [Concomitant]
  17. VITAMIN D-3 [Concomitant]
  18. LORATIDINE SYP [Concomitant]
  19. TRI-SPRINTEC [Concomitant]
  20. ELMIRON [Concomitant]
  21. ELMIRON [Concomitant]
  22. CELEBREX [Concomitant]
  23. CELEBREX [Concomitant]
  24. XANAX [Concomitant]
  25. XANAX [Concomitant]
  26. TRAMADOL HCL ER [Concomitant]

REACTIONS (7)
  - Migraine [Unknown]
  - Arthralgia [Unknown]
  - Abdominal pain [Unknown]
  - Muscular weakness [Unknown]
  - Myalgia [Unknown]
  - Constipation [Unknown]
  - Nausea [Unknown]
